FAERS Safety Report 8768187 (Version 2)
Quarter: 2012Q4

REPORT INFORMATION
  Report Type: 
  Country: JP (occurrence: JP)
  Receive Date: 20120905
  Receipt Date: 20121001
  Transmission Date: 20130627
  Serious: Yes (Hospitalization)
  Sender: FDA-Public Use
  Company Number: JP-GLAXOSMITHKLINE-B0816542A

PATIENT
  Age: 70 Year
  Sex: Male
  Weight: 65 kg

DRUGS (12)
  1. VALTREX [Suspect]
     Indication: HERPES ZOSTER
     Dosage: 1000MG Three times per day
     Route: 048
     Dates: start: 20120710, end: 20120716
  2. NAIXAN [Concomitant]
     Indication: PAIN
     Dosage: 100MG Three times per day
     Route: 048
     Dates: start: 20120710, end: 20120717
  3. METHYCOBAL [Concomitant]
     Indication: PAIN
     Dosage: 500MCG Three times per day
     Route: 048
     Dates: start: 20120710, end: 20120717
  4. WARFARIN [Concomitant]
     Indication: ATRIAL FIBRILLATION
     Route: 048
  5. BEPRICOR [Concomitant]
     Dosage: 50MG Twice per day
     Route: 048
  6. GASTER [Concomitant]
     Dosage: 10MG Twice per day
     Route: 048
  7. NU-LOTAN [Concomitant]
     Dosage: 25MG Twice per day
     Route: 048
  8. AMOBAN [Concomitant]
     Dosage: 7.5MG Per day
     Route: 048
  9. SYMBICORT [Concomitant]
     Route: 055
  10. PULMICORT [Concomitant]
     Route: 055
  11. POLYFUL [Concomitant]
     Route: 048
  12. CHINESE MEDICINE [Concomitant]
     Route: 048

REACTIONS (12)
  - Renal impairment [Unknown]
  - Renal tubular disorder [Unknown]
  - Renal failure [Unknown]
  - Ureteric obstruction [Unknown]
  - Renal disorder [Recovering/Resolving]
  - Dizziness [Unknown]
  - Blood pressure decreased [Unknown]
  - Face oedema [Unknown]
  - Blood creatinine increased [Unknown]
  - Beta 2 microglobulin urine increased [Unknown]
  - Drug level increased [Unknown]
  - Blood urea increased [Unknown]
